FAERS Safety Report 5258829-6 (Version None)
Quarter: 2007Q1

REPORT INFORMATION
  Report Type: 
  Country: None (occurrence: None)
  Receive Date: 20070308
  Receipt Date: 20070307
  Transmission Date: 20070707
  Serious: Yes (Hospitalization)
  Sender: FDA-Public Use
  Company Number: US-GLAXOSMITHKLINE-A0630615A

PATIENT
  Age: 87 Year
  Sex: Male
  Weight: 54.5 kg

DRUGS (12)
  1. AVANDIA [Suspect]
     Indication: DIABETES MELLITUS NON-INSULIN-DEPENDENT
     Dosage: 8MG PER DAY
     Route: 048
     Dates: start: 20030301
  2. METFORMIN HCL [Concomitant]
  3. GLIPIZIDE [Concomitant]
  4. LIPITOR [Concomitant]
  5. LISINOPRIL [Concomitant]
  6. VITAMIN D [Concomitant]
  7. CALCIUM [Concomitant]
  8. ASCORBIC ACID [Concomitant]
  9. VICODIN [Concomitant]
  10. FERROUS SULFATE [Concomitant]
  11. GLUCOSAMINE CHONDROITIN [Concomitant]
  12. VITAMIN CAP [Concomitant]

REACTIONS (6)
  - FALL [None]
  - FRACTURE [None]
  - PATELLA FRACTURE [None]
  - PELVIC FRACTURE [None]
  - UPPER LIMB FRACTURE [None]
  - WEIGHT INCREASED [None]
